FAERS Safety Report 11751866 (Version 1)
Quarter: 2015Q4

REPORT INFORMATION
  Report Type: Spontaneous
  Country: US (occurrence: US)
  Receive Date: 20151118
  Receipt Date: 20151118
  Transmission Date: 20160304
  Serious: No
  Sender: FDA-Public Use
  Company Number: US-AQUA-2014AQU000027

PATIENT
  Age: 39 Year
  Sex: Female

DRUGS (1)
  1. VERDESO [Suspect]
     Active Substance: DESONIDE
     Indication: DRY SKIN
     Route: 061
     Dates: start: 201404

REACTIONS (3)
  - Product quality issue [Unknown]
  - Application site erythema [Recovered/Resolved with Sequelae]
  - Product physical consistency issue [Unknown]

NARRATIVE: CASE EVENT DATE: 201404
